FAERS Safety Report 12101822 (Version 3)
Quarter: 2017Q2

REPORT INFORMATION
  Report Type: Spontaneous
  Country: US (occurrence: US)
  Receive Date: 20160222
  Receipt Date: 20170407
  Transmission Date: 20170829
  Serious: Yes (Other)
  Sender: FDA-Public Use
  Company Number: US-TEVA-637327USA

PATIENT
  Age: 45 Year
  Sex: Female

DRUGS (21)
  1. PREMARIN [Concomitant]
     Active Substance: ESTROGENS, CONJUGATED
  2. ZOFRAN [Concomitant]
     Active Substance: ONDANSETRON HYDROCHLORIDE
  3. BUTALBITAL [Concomitant]
     Active Substance: BUTALBITAL
  4. AMITIZA [Concomitant]
     Active Substance: LUBIPROSTONE
  5. METFORMIN [Concomitant]
     Active Substance: METFORMIN HYDROCHLORIDE
  6. LASIX [Concomitant]
     Active Substance: FUROSEMIDE
  7. FLEXERIL [Concomitant]
     Active Substance: CYCLOBENZAPRINE HYDROCHLORIDE
  8. ZECUITY [Suspect]
     Active Substance: SUMATRIPTAN SUCCINATE
     Indication: MIGRAINE
     Route: 062
     Dates: start: 201608
  9. PHENERGAN [Concomitant]
     Active Substance: PROMETHAZINE HYDROCHLORIDE
  10. SYNTHROID [Concomitant]
     Active Substance: LEVOTHYROXINE SODIUM
  11. BYSTOLIC [Concomitant]
     Active Substance: NEBIVOLOL HYDROCHLORIDE
  12. AXERT [Concomitant]
     Active Substance: ALMOTRIPTAN MALATE
  13. VIIBRYD [Concomitant]
     Active Substance: VILAZODONE HYDROCHLORIDE
  14. NEURONTIN [Concomitant]
     Active Substance: GABAPENTIN
  15. COLCRYS [Concomitant]
     Active Substance: COLCHICINE
  16. CYTOMEL [Concomitant]
     Active Substance: LIOTHYRONINE SODIUM
  17. ACYCLOVIR. [Concomitant]
     Active Substance: ACYCLOVIR
  18. PROTONIX [Concomitant]
     Active Substance: PANTOPRAZOLE SODIUM
  19. NORCO [Concomitant]
     Active Substance: ACETAMINOPHEN\HYDROCODONE BITARTRATE
  20. METOPROLOL. [Concomitant]
     Active Substance: METOPROLOL
  21. VITAMIN B12 [Concomitant]
     Active Substance: CYANOCOBALAMIN

REACTIONS (5)
  - Blister [Recovered/Resolved]
  - Application site burn [Recovered/Resolved]
  - Application site injury [Recovering/Resolving]
  - Urticaria [Recovering/Resolving]
  - Application site discolouration [Recovering/Resolving]

NARRATIVE: CASE EVENT DATE: 201608
